FAERS Safety Report 8221598-1 (Version None)
Quarter: 2012Q1

REPORT INFORMATION
  Report Type: 
  Country: None (occurrence: None)
  Receive Date: 20120320
  Receipt Date: 20120314
  Transmission Date: 20120608
  Serious: Yes (Other)
  Sender: FDA-Public Use
  Company Number: US-JNJFOC-20120308118

PATIENT
  Age: 41 Year
  Sex: Female
  Weight: 49.9 kg

DRUGS (4)
  1. BENADRYL [Suspect]
     Route: 048
  2. ALLEGRA [Concomitant]
     Indication: MULTIPLE ALLERGIES
     Route: 065
  3. BENADRYL [Suspect]
     Indication: HYPERSENSITIVITY
     Dosage: ^TWO CAPLETS ONE TIME ONLY^
     Route: 048
     Dates: start: 20120101, end: 20120101
  4. PEPCID [Concomitant]
     Indication: PRODUCT USED FOR UNKNOWN INDICATION
     Route: 065

REACTIONS (2)
  - ANXIETY [None]
  - HYPERSENSITIVITY [None]
